FAERS Safety Report 12497943 (Version 1)
Quarter: 2016Q2

REPORT INFORMATION
  Report Type: Spontaneous
  Country: VE (occurrence: VE)
  Receive Date: 20160626
  Receipt Date: 20160626
  Transmission Date: 20160815
  Serious: Yes (Other)
  Sender: FDA-Public Use
  Company Number: PHHY2016VE086691

PATIENT
  Age: 8 Month
  Sex: Female
  Weight: 35 kg

DRUGS (5)
  1. TRILEPTAL [Suspect]
     Active Substance: OXCARBAZEPINE
     Indication: ENCEPHALOMYELITIS
     Dosage: 18 CM3, QD
     Route: 048
     Dates: start: 200703
  2. TRILEPTAL [Suspect]
     Active Substance: OXCARBAZEPINE
     Indication: ENCEPHALOMYELITIS
     Dosage: 1.5 DF (TOTA DOSE: 900 MG), BID
     Route: 048
     Dates: start: 2015
  3. FOLIC ACID. [Concomitant]
     Active Substance: FOLIC ACID
     Indication: PRODUCT USED FOR UNKNOWN INDICATION
     Dosage: 5 MG, QD
     Route: 065
  4. VALPRON//VALPROATE SODIUM [Suspect]
     Active Substance: VALPROATE SODIUM
     Indication: ENCEPHALOMYELITIS
     Dosage: 18 CM3, QD
     Route: 065
     Dates: start: 200703
  5. TRILEPTAL [Suspect]
     Active Substance: OXCARBAZEPINE
     Dosage: 1 DF (TOTAL DOSE: 600 MG), BID
     Route: 048

REACTIONS (7)
  - Blindness unilateral [Unknown]
  - Crying [Unknown]
  - Blood potassium increased [Unknown]
  - Irritability [Unknown]
  - Sluggishness [Unknown]
  - Headache [Unknown]
  - Product use issue [Unknown]

NARRATIVE: CASE EVENT DATE: 200703
